FAERS Safety Report 14917341 (Version 2)
Quarter: 2019Q3

REPORT INFORMATION
  Report Type: Report from Study
  Country: US (occurrence: US)
  Receive Date: 20180521
  Receipt Date: 20190807
  Transmission Date: 20191004
  Serious: Yes (Other)
  Sender: FDA-Public Use
  Company Number: US-ROCHE-2125239

PATIENT
  Age: 66 Year
  Sex: Male
  Weight: 91.88 kg

DRUGS (18)
  1. CARVEDILOL. [Concomitant]
     Active Substance: CARVEDILOL
     Dosage: 30 DAYS
     Route: 048
     Dates: start: 20171106
  2. CARVEDILOL. [Concomitant]
     Active Substance: CARVEDILOL
     Dosage: 0.5 TABLET FOR 90 DAYS
     Route: 048
     Dates: start: 20180809
  3. PANTOPRAZOLE [Concomitant]
     Active Substance: PANTOPRAZOLE
     Route: 048
  4. AMIODARONE [Concomitant]
     Active Substance: AMIODARONE
     Dosage: 30 DAYS
     Route: 048
     Dates: start: 20180404
  5. FLUTICASONE. [Concomitant]
     Active Substance: FLUTICASONE
     Dosage: 30 DAYS, 50 MCG/ACTUATION NASAL SPRAY
     Route: 045
     Dates: start: 20171107
  6. PRADAXA [Concomitant]
     Active Substance: DABIGATRAN ETEXILATE MESYLATE
     Route: 048
     Dates: start: 20161030
  7. CELLCEPT [Suspect]
     Active Substance: MYCOPHENOLATE MOFETIL\MYCOPHENOLATE MOFETIL HYDROCHLORIDE
     Indication: RENAL TRANSPLANT
     Dosage: TAKE 4 CAPSULES
     Route: 048
     Dates: start: 20170421
  8. AMIODARONE [Concomitant]
     Active Substance: AMIODARONE
     Dosage: 30 DAYS
     Route: 048
     Dates: start: 20181121
  9. OXYCODONE [Concomitant]
     Active Substance: OXYCODONE
     Dosage: 10-325 MG FOR 30 DAYS
     Route: 048
     Dates: start: 20190713
  10. LOSARTAN. [Concomitant]
     Active Substance: LOSARTAN
     Dosage: 90 DAYS
     Route: 048
     Dates: start: 20180206
  11. OXYCODONE [Concomitant]
     Active Substance: OXYCODONE
     Route: 048
     Dates: start: 20160404
  12. NEORAL [Concomitant]
     Active Substance: CYCLOSPORINE
     Route: 048
     Dates: start: 20180509
  13. PRADAXA [Concomitant]
     Active Substance: DABIGATRAN ETEXILATE MESYLATE
     Dosage: FOR 30 DAYS
     Route: 048
  14. ZOLPIDEM [Concomitant]
     Active Substance: ZOLPIDEM TARTRATE
     Route: 048
     Dates: start: 20180310
  15. FERROUS SULPHATE [FERROUS SULFATE] [Concomitant]
     Active Substance: FERROUS SULFATE
     Route: 048
     Dates: start: 20180108
  16. LOSARTAN. [Concomitant]
     Active Substance: LOSARTAN
     Dosage: 90 DAYS
     Route: 048
     Dates: start: 20190725
  17. SIMVASTATIN. [Concomitant]
     Active Substance: SIMVASTATIN
     Route: 048
     Dates: start: 20180416
  18. SIMVASTATIN. [Concomitant]
     Active Substance: SIMVASTATIN
     Route: 048
     Dates: start: 20190709

REACTIONS (12)
  - Dizziness [Not Recovered/Not Resolved]
  - Cardiac murmur [Unknown]
  - Atrial fibrillation [Not Recovered/Not Resolved]
  - Hypoaesthesia [Not Recovered/Not Resolved]
  - Dyspnoea [Unknown]
  - Palpitations [Not Recovered/Not Resolved]
  - Neck pain [Not Recovered/Not Resolved]
  - Sleep apnoea syndrome [Not Recovered/Not Resolved]
  - Treatment failure [Not Recovered/Not Resolved]
  - Depression [Not Recovered/Not Resolved]
  - Haemorrhage [Unknown]
  - Overweight [Unknown]

NARRATIVE: CASE EVENT DATE: 20190725
